FAERS Safety Report 8885309 (Version 1)
Quarter: 2012Q4

REPORT INFORMATION
  Report Type: 
  Country: US (occurrence: US)
  Receive Date: 20121102
  Receipt Date: 20121102
  Transmission Date: 20130627
  Serious: No
  Sender: FDA-Public Use
  Company Number: US-009507513-1210USA013772

PATIENT
  Age: 16 Year
  Sex: Male

DRUGS (2)
  1. DULERA [Suspect]
     Indication: ASTHMA
     Dosage: 2x200/5, bid
     Route: 055
     Dates: start: 20120727
  2. MONTELUKAST [Concomitant]

REACTIONS (7)
  - Chest pain [Not Recovered/Not Resolved]
  - Photosensitivity reaction [Not Recovered/Not Resolved]
  - Lethargy [Not Recovered/Not Resolved]
  - Dizziness [Not Recovered/Not Resolved]
  - Hypertension [Not Recovered/Not Resolved]
  - Headache [Not Recovered/Not Resolved]
  - Palpitations [Not Recovered/Not Resolved]
